FAERS Safety Report 8838243 (Version 1)
Quarter: 2012Q4

REPORT INFORMATION
  Report Type: 
  Country: US (occurrence: US)
  Receive Date: 20121012
  Receipt Date: 20121012
  Transmission Date: 20130627
  Serious: Yes (Other)
  Sender: FDA-Public Use
  Company Number: US-TEVA-363782USA

PATIENT
  Sex: Female

DRUGS (13)
  1. SUPER B COMPLEX [Suspect]
     Route: 048
  2. BIOTIN [Suspect]
     Dosage: 5000 Microgram Daily;
     Route: 048
  3. CALTRATE WITH VITAMIN D [Suspect]
     Dosage: 1200 Milligram Daily;
     Route: 048
  4. COLON HEALTH PROBIOTIC [Suspect]
     Route: 048
  5. METOPROLOL [Suspect]
     Route: 048
  6. COLACE [Suspect]
     Dosage: 200 Milligram Daily;
     Route: 048
  7. ASPIRIN [Suspect]
     Dosage: 325
  8. METAMUCIL [Suspect]
     Route: 048
  9. PRAVASTATIN [Suspect]
     Dosage: 1 Tablet Daily;
     Route: 048
  10. OMEPRAZOLE [Suspect]
     Route: 048
  11. CENTRUM SILVER [Suspect]
     Route: 048
  12. OMEGA-3 [Suspect]
     Route: 048
  13. SPIRONOLACTONE W/HYDROCHLOROTHIAZIDE [Suspect]
     Dosage: 1 Tablet Daily; 1 25/25 tablet
     Route: 048

REACTIONS (2)
  - Loss of consciousness [Unknown]
  - Impaired driving ability [Unknown]
